FAERS Safety Report 14756922 (Version 1)
Quarter: 2018Q2

REPORT INFORMATION
  Report Type: Spontaneous
  Country: US (occurrence: US)
  Receive Date: 20180413
  Receipt Date: 20180413
  Transmission Date: 20180711
  Serious: No
  Sender: FDA-Public Use
  Company Number: US-BION-006567

PATIENT
  Sex: Female

DRUGS (1)
  1. ALEVE [Suspect]
     Active Substance: NAPROXEN SODIUM
     Route: 048

REACTIONS (3)
  - Accidental overdose [Not Recovered/Not Resolved]
  - Expired product administered [Not Recovered/Not Resolved]
  - Wrong drug administered [Not Recovered/Not Resolved]

NARRATIVE: CASE EVENT DATE: 20170804
